FAERS Safety Report 24065502 (Version 1)
Quarter: 2024Q3

REPORT INFORMATION
  Report Type: Spontaneous
  Country: US (occurrence: US)
  Receive Date: 20240709
  Receipt Date: 20240709
  Transmission Date: 20241016
  Serious: No
  Sender: SIGMAPHARM
  Company Number: US-SIGMAPHARM LABORATORIES, LLC-2023SIG00060

PATIENT
  Sex: Male

DRUGS (1)
  1. ACITRETIN [Suspect]
     Active Substance: ACITRETIN
     Indication: Psoriasis
     Dosage: 25 MG, 1X/DAY
     Route: 048
     Dates: start: 2019

REACTIONS (1)
  - Drug ineffective [Unknown]
